FAERS Safety Report 5447961-X (Version None)
Quarter: 2007Q3

REPORT INFORMATION
  Report Type: 
  Country: None (occurrence: None)
  Receive Date: 20070910
  Receipt Date: 20070828
  Transmission Date: 20080115
  Serious: No
  Sender: FDA-Public Use
  Company Number: US-BOEHRINGER INGELHEIM PHARMACEUTICALS, INC.-2007-BP-20013BP

PATIENT
  Sex: Female

DRUGS (14)
  1. AGGRENOX [Suspect]
     Indication: CEREBROVASCULAR ACCIDENT PROPHYLAXIS
     Route: 048
     Dates: start: 20040701
  2. AGGRENOX [Suspect]
     Indication: TRANSIENT ISCHAEMIC ATTACK
  3. TYLENOL [WITH ULTRAM] [Concomitant]
     Indication: PAIN
  4. [TYLENOL] WITH ULTRAM [Concomitant]
  5. NORVASC [Concomitant]
     Indication: HYPERTENSION
  6. LYRICA [Concomitant]
     Indication: NEUROPATHY
  7. HIPREX [Concomitant]
     Indication: URINARY TRACT INFECTION
  8. CALCIUM [Concomitant]
  9. REMERON [Concomitant]
     Indication: DEPRESSION
  10. MACRODANTIN [Concomitant]
     Indication: URINARY TRACT INFECTION
  11. ASCORBIC ACID [Concomitant]
  12. VITAMIN D [Concomitant]
  13. NEXIUM [Concomitant]
     Indication: GASTROOESOPHAGEAL REFLUX DISEASE
  14. FORTEO [Concomitant]
     Indication: OSTEOPOROSIS

REACTIONS (4)
  - CONTUSION [None]
  - CYST [None]
  - INCREASED TENDENCY TO BRUISE [None]
  - SKIN HAEMORRHAGE [None]
